FAERS Safety Report 8248310 (Version 4)
Quarter: 2013Q4

REPORT INFORMATION
  Report Type: Spontaneous
  Country: US (occurrence: None)
  Receive Date: 20111109
  Receipt Date: 20131030
  Transmission Date: 20140711
  Serious: Yes (Death, Hospitalization)
  Sender: FDA-Public Use
  Company Number: ACO_27660_2011

PATIENT
  Sex: Female

DRUGS (3)
  1. AMPYRA [Suspect]
     Indication: MULTIPLE SCLEROSIS
     Dosage: 10 MG, BID, ORAL
     Route: 048
     Dates: start: 201007
  2. CALCIUM  (CALCIUM GLUCONATE) [Concomitant]
  3. PROBIOTICS [Concomitant]

REACTIONS (3)
  - Gallbladder disorder [None]
  - Blood pressure increased [None]
  - Flushing [None]
